FAERS Safety Report 5772333-8 (Version None)
Quarter: 2008Q2

REPORT INFORMATION
  Report Type: 
  Country: None (occurrence: None)
  Receive Date: 20080613
  Receipt Date: 20080530
  Transmission Date: 20081010
  Serious: Yes (Life-Threatening, Other)
  Sender: FDA-Public Use
  Company Number: FR-ROCHE-561932

PATIENT
  Age: 37 Year
  Sex: Male

DRUGS (2)
  1. PEGASYS [Suspect]
     Indication: HEPATITIS C
     Dosage: FORM: INJECTABLE SOLUTION
     Route: 058
     Dates: start: 20071219, end: 20080319
  2. REBETOL [Concomitant]
     Indication: HEPATITIS C
     Route: 048
     Dates: start: 20071219, end: 20080507

REACTIONS (7)
  - HAEMOGLOBIN DECREASED [None]
  - INFLAMMATION [None]
  - IRON DEFICIENCY ANAEMIA [None]
  - LUNG NEOPLASM [None]
  - PULMONARY EMBOLISM [None]
  - PULMONARY INFARCTION [None]
  - WEIGHT DECREASED [None]
